FAERS Safety Report 4304095-5 (Version None)
Quarter: 2004Q1

REPORT INFORMATION
  Report Type: 
  Country: None (occurrence: None)
  Receive Date: 20040223
  Receipt Date: 20040102
  Transmission Date: 20041129
  Serious: No
  Sender: FDA-Public Use
  Company Number: PHEH2003US11307

PATIENT
  Age: 87 Year
  Sex: Female

DRUGS (5)
  1. ZELNORM [Suspect]
     Indication: FLATULENCE
     Dosage: 2 MG, BID, ORAL
     Route: 048
     Dates: start: 20031006, end: 20031012
  2. SYNTHROID [Concomitant]
  3. IMDUR [Concomitant]
  4. LOVASTATIN [Concomitant]
  5. METOPROLOL [Concomitant]

REACTIONS (3)
  - DIZZINESS [None]
  - FATIGUE [None]
  - NAUSEA [None]
